FAERS Safety Report 18499626 (Version 2)
Quarter: 2020Q4

REPORT INFORMATION
  Report Type: Spontaneous
  Country: US (occurrence: US)
  Receive Date: 20201113
  Receipt Date: 20201126
  Transmission Date: 20210114
  Serious: Yes (Hospitalization, Other)
  Sender: FDA-Public Use
  Company Number: US-AUROBINDO-AUR-APL-2020-055736

PATIENT
  Age: 62 Year
  Sex: Female

DRUGS (10)
  1. HYALURONIC ACID [Concomitant]
     Active Substance: HYALURONIC ACID
     Indication: RHEUMATOID ARTHRITIS
     Dosage: 5 DOSAGE FORM
     Route: 014
  2. METHOTREXATE. [Suspect]
     Active Substance: METHOTREXATE
     Indication: RHEUMATOID ARTHRITIS
     Dosage: UNK
     Route: 065
  3. LIDOCAINE. [Concomitant]
     Active Substance: LIDOCAINE
     Indication: ARTHRALGIA
  4. METHOTREXATE. [Suspect]
     Active Substance: METHOTREXATE
     Indication: ARTHRALGIA
  5. PREDNISONE. [Suspect]
     Active Substance: PREDNISONE
     Indication: RHEUMATOID ARTHRITIS
     Dosage: UNK
     Route: 065
  6. DEXAMETHASONE INJECTION [Suspect]
     Active Substance: DEXAMETHASONE
     Indication: RHEUMATOID ARTHRITIS
     Dosage: UNK
     Route: 014
  7. DEXAMETHASONE INJECTION [Suspect]
     Active Substance: DEXAMETHASONE
     Indication: ARTHRALGIA
  8. CIMZIA [Suspect]
     Active Substance: CERTOLIZUMAB PEGOL
     Indication: RHEUMATOID ARTHRITIS
     Dosage: UNK
     Route: 065
     Dates: start: 201010
  9. CIMZIA [Suspect]
     Active Substance: CERTOLIZUMAB PEGOL
     Indication: ARTHRALGIA
  10. LIDOCAINE. [Concomitant]
     Active Substance: LIDOCAINE
     Indication: RHEUMATOID ARTHRITIS
     Dosage: UNK
     Route: 014

REACTIONS (2)
  - Moraxella infection [Recovered/Resolved]
  - Arthritis infective [Recovered/Resolved]
